FAERS Safety Report 5876448-5 (Version None)
Quarter: 2008Q3

REPORT INFORMATION
  Report Type: 
  Country: None (occurrence: None)
  Receive Date: 20080910
  Receipt Date: 20080828
  Transmission Date: 20090109
  Serious: Yes (Hospitalization, Other)
  Sender: FDA-Public Use
  Company Number: CA-ELI_LILLY_AND_COMPANY-CA200804001602

PATIENT
  Age: 38 Year
  Sex: Female

DRUGS (14)
  1. FORTEO [Suspect]
     Indication: OSTEOPOROSIS
     Dosage: 20 UG, DAILY (1/D)
     Route: 058
     Dates: start: 20061107, end: 20061213
  2. FORTEO [Suspect]
     Dosage: 20 UG, DAILY (1/D)
     Route: 058
     Dates: start: 20070917, end: 20080330
  3. FORTEO [Suspect]
     Dosage: 20 UG, DAILY (1/D)
     Route: 058
     Dates: start: 20080409, end: 20080814
  4. FORTEO [Suspect]
     Dosage: 20 UG, DAILY (1/D)
     Route: 058
     Dates: start: 20080801
  5. INDERAL [Concomitant]
  6. SERC                               /00034201/ [Concomitant]
  7. MEDROXYPROGESTERONE [Concomitant]
  8. NORVASC [Concomitant]
  9. FERROUS GLUCONATE [Concomitant]
  10. OMEPRAZOLE [Concomitant]
  11. LIPITOR [Concomitant]
  12. AMILORIDE HYDROCHLORIDE [Concomitant]
  13. COUMADIN [Concomitant]
  14. ALFACALCIDOL [Concomitant]

REACTIONS (5)
  - MYOCARDIAL INFARCTION [None]
  - MYOCARDIAL ISCHAEMIA [None]
  - PYREXIA [None]
  - RENAL FAILURE [None]
  - SYSTEMIC LUPUS ERYTHEMATOSUS [None]
